FAERS Safety Report 9246309 (Version 2)
Quarter: 2013Q2

REPORT INFORMATION
  Report Type: Spontaneous
  Country: US (occurrence: US)
  Receive Date: 20130422
  Receipt Date: 20130626
  Transmission Date: 20140414
  Serious: Yes (Hospitalization, Other)
  Sender: FDA-Public Use
  Company Number: PHHY2013US037206

PATIENT
  Age: 81 Year
  Sex: Male

DRUGS (8)
  1. GEMFIBROZIL [Suspect]
     Dosage: 600 MG, BID
     Route: 048
  2. SIMVASTATIN [Interacting]
     Dosage: 80 MG DAILY
  3. ASPIRIN [Concomitant]
  4. CLOPIDOGREL [Concomitant]
  5. ISOSORBIDE DINITRATE [Concomitant]
  6. FUROSEMIDE [Concomitant]
  7. METOPROLOL TARTRATE [Concomitant]
     Dosage: 100 MG, BID
     Route: 048
  8. OMEPRAZOLE [Concomitant]

REACTIONS (15)
  - Renal failure acute [Unknown]
  - Rhabdomyolysis [Unknown]
  - Acute coronary syndrome [Unknown]
  - Asthenia [Unknown]
  - Myalgia [Unknown]
  - Muscular weakness [Unknown]
  - Lethargy [Unknown]
  - Oliguria [Unknown]
  - Blood creatinine increased [Unknown]
  - Chest pain [Unknown]
  - Acute myocardial infarction [Unknown]
  - Dyspnoea [Unknown]
  - Dizziness [Unknown]
  - Drug interaction [Unknown]
  - Pain in extremity [Unknown]
